FAERS Safety Report 7240107-7 (Version None)
Quarter: 2011Q1

REPORT INFORMATION
  Report Type: 
  Country: None (occurrence: None)
  Receive Date: 20110124
  Receipt Date: 20110117
  Transmission Date: 20110831
  Serious: Yes (Other)
  Sender: FDA-Public Use
  Company Number: JP-JNJFOC-20110103819

PATIENT
  Sex: Male

DRUGS (4)
  1. LOPEMIN [Concomitant]
     Indication: DIARRHOEA
     Route: 048
  2. DUROTEP MT [Suspect]
     Indication: CANCER PAIN
     Dosage: 12.5 UG/HR + HALF OF 12.5 UG/HR PATCH
     Route: 062
  3. DUROTEP MT [Suspect]
     Dosage: A HALF PATCH
     Route: 062
  4. DUROTEP MT [Suspect]
     Route: 062

REACTIONS (5)
  - WRONG TECHNIQUE IN DRUG USAGE PROCESS [None]
  - DRUG INEFFECTIVE [None]
  - ALTERED STATE OF CONSCIOUSNESS [None]
  - DRUG WITHDRAWAL SYNDROME [None]
  - HYPERSOMNIA [None]
